FAERS Safety Report 21613568 (Version 1)
Quarter: 2022Q4

REPORT INFORMATION
  Report Type: Spontaneous
  Country: US (occurrence: US)
  Receive Date: 20221118
  Receipt Date: 20221118
  Transmission Date: 20230113
  Serious: No
  Sender: FDA-Public Use
  Company Number: ALC2022US004089

PATIENT
  Sex: Female

DRUGS (2)
  1. EYSUVIS [Suspect]
     Active Substance: LOTEPREDNOL ETABONATE
     Indication: Dry eye
     Dosage: 2 DOSES (AT NIGHT AND IN THE MORNING) OF 1 DROP IN EACH
     Route: 047
     Dates: start: 20220817, end: 20220818
  2. EYSUVIS [Suspect]
     Active Substance: LOTEPREDNOL ETABONATE
     Indication: Eye irritation
     Dosage: UNK
     Route: 065

REACTIONS (7)
  - Eye swelling [Recovered/Resolved]
  - Ocular hyperaemia [Recovered/Resolved]
  - Eye pain [Recovered/Resolved]
  - Unevaluable event [Recovered/Resolved]
  - Hypersensitivity [Recovered/Resolved]
  - Performance status decreased [Recovered/Resolved]
  - Eye disorder [Recovered/Resolved]

NARRATIVE: CASE EVENT DATE: 20220818
